FAERS Safety Report 9482683 (Version 2)
Quarter: 2013Q4

REPORT INFORMATION
  Report Type: Report from Study
  Country: US (occurrence: US)
  Receive Date: 20130828
  Receipt Date: 20131007
  Transmission Date: 20140711
  Serious: Yes (Other)
  Sender: FDA-Public Use
  Company Number: US-JNJFOC-20130811973

PATIENT
  Sex: Female
  Weight: 158.76 kg

DRUGS (37)
  1. REMICADE [Suspect]
     Indication: PSORIATIC ARTHROPATHY
     Route: 042
     Dates: start: 201210
  2. REMICADE [Suspect]
     Indication: PSORIATIC ARTHROPATHY
     Route: 042
     Dates: start: 2013, end: 201307
  3. STEROIDS NOS [Suspect]
     Indication: PRODUCT USED FOR UNKNOWN INDICATION
     Route: 065
  4. ACIDOPHILUS [Concomitant]
     Route: 065
  5. HYDROCODONE + ACETAMINOPHEN [Concomitant]
     Indication: PAIN
     Dosage: 5-500 MG 30 DAYS, 3 REFILLS
  6. VITAMIN C [Concomitant]
     Route: 065
  7. GLUCOSAMINE + CHONDROITIN COMBO [Concomitant]
     Route: 065
  8. MULTIVITAMINS [Concomitant]
     Route: 065
  9. COQ10 [Concomitant]
     Route: 065
  10. LORATADINE [Concomitant]
     Route: 065
  11. VITAMIN D3 [Concomitant]
     Route: 065
  12. HYDROXYCHLOROQUINE SULFATE [Concomitant]
     Dosage: 200 MG, 90 DAYS, 2 REFILLS
     Route: 065
  13. PROVENTIL [Concomitant]
     Indication: DYSPNOEA
     Dosage: MCG/ACT AERS, USE AS DIRECTED, 30 DAYS, 5 REFILLS, 2 PUFFS ONCE EVERY 4 HOURS
     Route: 065
  14. PROVENTIL [Concomitant]
     Indication: COUGH
     Dosage: MCG/ACT AERS, USE AS DIRECTED, 30 DAYS, 5 REFILLS, 2 PUFFS ONCE EVERY 4 HOURS
     Route: 065
  15. VITAMIN B COMPLEX [Concomitant]
     Route: 065
  16. EVENING PRIMROSE OIL [Concomitant]
     Dosage: ONCE EVERY EVENING
     Route: 065
  17. OMEPRAZOLE [Concomitant]
     Indication: GASTROOESOPHAGEAL REFLUX DISEASE
     Dosage: 20 MG TBEC, 90 DAYS, 3 REFILLS
     Route: 048
     Dates: start: 2000
  18. SYNTHROID [Concomitant]
     Route: 048
     Dates: start: 2008
  19. ATENOLOL [Concomitant]
     Indication: HYPERTENSION
     Dosage: 90 DAYS, 3 REFILLS
     Route: 048
  20. PLAQUENIL [Concomitant]
     Indication: FIBROMYALGIA
     Route: 048
     Dates: start: 2000
  21. PLAQUENIL [Concomitant]
     Indication: ARTHRITIS
     Route: 048
     Dates: start: 2000
  22. WELLBUTRIN [Concomitant]
     Indication: DEPRESSION
     Route: 048
     Dates: start: 2005
  23. WELCHOL [Concomitant]
     Indication: IRRITABLE BOWEL SYNDROME
     Dosage: 90 DAYS, 3 REFILLS
     Route: 048
     Dates: start: 2008
  24. BENICAR [Concomitant]
     Indication: HYPERTENSION
     Dosage: 90 DAYS, 3 REFILLS
     Route: 048
     Dates: start: 2008
  25. CELEBREX [Concomitant]
     Indication: BACK PAIN
     Dosage: 90 DAYS. 3 REFILLS, TO BE TAKEN WITH FOOD AND USED SPARINGLY
     Route: 048
     Dates: start: 2000
  26. CELEBREX [Concomitant]
     Indication: ARTHRITIS
     Dosage: 90 DAYS. 3 REFILLS, TO BE TAKEN WITH FOOD AND USED SPARINGLY
     Route: 048
     Dates: start: 2000
  27. DOXEPIN [Concomitant]
     Indication: DEPRESSION
     Dosage: 90 DAYS, 3 REFILLS
     Route: 048
     Dates: start: 2000
  28. LIBRAX [Concomitant]
     Indication: IRRITABLE BOWEL SYNDROME
     Dosage: 2.5-5.00 MG, 90 DAYS, 3 REFILLS
     Route: 048
  29. HYDROCODONE [Concomitant]
     Indication: PAIN
     Route: 048
     Dates: start: 2003
  30. HYDROCHLOROTHIAZIDE [Concomitant]
     Indication: HYPERTENSION
     Dosage: 90 DAYS, 3 REFILLS
     Route: 048
  31. LYRICA [Concomitant]
     Indication: FIBROMYALGIA
     Dosage: 90 DAYS, 3 REFIILS, CAUTION SEDATION
     Route: 048
     Dates: start: 2003
  32. LYRICA [Concomitant]
     Indication: ARTHRITIS
     Dosage: 90 DAYS, 3 REFIILS, CAUTION SEDATION
     Route: 048
     Dates: start: 2003
  33. BUPROPION HCL ER [Concomitant]
     Dosage: ^TB 24^, 90 DAYS, 3 REFILLS
     Route: 065
  34. FISH OIL [Concomitant]
     Route: 065
  35. BENICAR [Concomitant]
     Route: 065
  36. PREDNISONE [Concomitant]
     Route: 065
  37. CALCIUM [Concomitant]
     Route: 065

REACTIONS (3)
  - Tibia fracture [Recovering/Resolving]
  - Osteogenesis imperfecta [Not Recovered/Not Resolved]
  - Psoriatic arthropathy [Recovered/Resolved]
